FAERS Safety Report 8886320 (Version 1)
Quarter: 2012Q4

REPORT INFORMATION
  Report Type: 
  Country: US (occurrence: US)
  Receive Date: 20121105
  Receipt Date: 20121105
  Transmission Date: 20130627
  Serious: Yes (Hospitalization)
  Sender: FDA-Public Use
  Company Number: US-ASTRAZENECA-2012SE81962

PATIENT
  Age: 64 Year
  Sex: Male

DRUGS (11)
  1. OMEPRAZOLE [Suspect]
     Route: 048
  2. CRESTOR [Suspect]
     Indication: ARTERIOSCLEROSIS
     Route: 048
     Dates: start: 20120918, end: 2012
  3. ALLEGRA [Concomitant]
  4. HYDROCHLOROTHIAZIDE [Concomitant]
  5. CLOPIDOGREL [Concomitant]
  6. WELCHOL [Concomitant]
     Indication: BLOOD CHOLESTEROL ABNORMAL
     Route: 048
     Dates: start: 20120515
  7. FOLIC ACID [Concomitant]
  8. HYDRALAZINE [Concomitant]
  9. PROPRANOLOL [Concomitant]
  10. ASPIRIN [Concomitant]
  11. ISOSORBIDE MONONITRATE [Concomitant]

REACTIONS (2)
  - Renal failure acute [Unknown]
  - Rhabdomyolysis [Unknown]
